FAERS Safety Report 22265388 (Version 2)
Quarter: 2023Q2

REPORT INFORMATION
  Report Type: Spontaneous
  Country: IT (occurrence: IT)
  Receive Date: 20230428
  Receipt Date: 20230503
  Transmission Date: 20230722
  Serious: Yes (Other)
  Sender: FDA-Public Use
  Company Number: IT-PFIZER INC-202300172017

PATIENT
  Age: 66 Year
  Sex: Male

DRUGS (1)
  1. TAVOR (LORAZEPAM) [Suspect]
     Active Substance: LORAZEPAM
     Dosage: UNK (HALF A TABLET)

REACTIONS (8)
  - Depressed level of consciousness [Unknown]
  - Regurgitation [Unknown]
  - Hyperhidrosis [Unknown]
  - Sleep disorder [Unknown]
  - Anxiety [Unknown]
  - Wrong technique in product usage process [Unknown]
  - Intentional product misuse [Unknown]
  - Product complaint [Unknown]
